FAERS Safety Report 18141601 (Version 1)
Quarter: 2020Q3

REPORT INFORMATION
  Report Type: Spontaneous
  Country: PL (occurrence: PL)
  Receive Date: 20200812
  Receipt Date: 20200812
  Transmission Date: 20201103
  Serious: Yes (Life-Threatening, Hospitalization, Other)
  Sender: FDA-Public Use
  Company Number: PL-AMGEN-POLSP2020127194

PATIENT
  Age: 3 Year
  Sex: Male

DRUGS (7)
  1. MELPHALAN. [Concomitant]
     Active Substance: MELPHALAN
     Indication: NEUROBLASTOMA
     Dosage: 4 MILLIGRAM/KILOGRAM
  2. FILGRASTIM [Suspect]
     Active Substance: FILGRASTIM
     Indication: HAEMATOPOIETIC STEM CELL MOBILISATION
     Dosage: 5 MICROGRAM/KILOGRAM, QD
     Route: 065
  3. BUSULFAN. [Concomitant]
     Active Substance: BUSULFAN
     Indication: NEUROBLASTOMA
     Dosage: 16 MILLIGRAM/KILOGRAM
  4. DINUTUXIMAB [Concomitant]
     Active Substance: DINUTUXIMAB
     Dosage: UNK
  5. TEMOZOLOMIDE. [Concomitant]
     Active Substance: TEMOZOLOMIDE
     Indication: NEUROBLASTOMA
     Dosage: UNK
  6. PLERIXAFOR [Concomitant]
     Active Substance: PLERIXAFOR
     Indication: HAEMATOPOIETIC STEM CELL MOBILISATION
     Dosage: UNK
  7. IRINOTECAN [Concomitant]
     Active Substance: IRINOTECAN
     Indication: NEUROBLASTOMA
     Dosage: UNK

REACTIONS (9)
  - Circulatory collapse [Recovered/Resolved]
  - Post procedural hypotension [Recovered/Resolved]
  - Cardiac arrest [Recovered/Resolved]
  - Therapy non-responder [Unknown]
  - Respiratory failure [Recovered/Resolved]
  - Venoocclusive liver disease [Recovered/Resolved]
  - White blood cell count increased [Recovered/Resolved]
  - Acute lung injury [Recovered/Resolved]
  - Seizure [Recovered/Resolved]
